FAERS Safety Report 9399239 (Version 1)
Quarter: 2013Q3

REPORT INFORMATION
  Report Type: Spontaneous
  Country: NL (occurrence: None)
  Receive Date: 20130709
  Receipt Date: 20130709
  Transmission Date: 20140515
  Serious: Yes (Other)
  Sender: FDA-Public Use
  Company Number: 2013AP006411

PATIENT
  Age: 63 Year
  Sex: Male

DRUGS (5)
  1. PREDNISOLONE (PREDNISOLONE) [Suspect]
     Indication: IMMUNOSUPPRESSANT DRUG THERAPY
     Route: 048
  2. AZATHIOPRINE (AZATHIOPRINE) [Suspect]
     Indication: IMMUNOSUPPRESSANT DRUG THERAPY
  3. METHOTREXATE (METHOTREXATE) [Suspect]
     Indication: IMMUNOSUPPRESSANT DRUG THERAPY
  4. THIAMINE (THIAMINE) [Concomitant]
  5. METHYLPREDNISOLONE (METHYPREDNISOLONE) [Concomitant]

REACTIONS (7)
  - Hepatic function abnormal [None]
  - Pancytopenia [None]
  - Diabetes mellitus [None]
  - Deep vein thrombosis [None]
  - Erythropoiesis abnormal [None]
  - Marrow hyperplasia [None]
  - Herpes virus infection [None]
